FAERS Safety Report 17030756 (Version 1)
Quarter: 2019Q4

REPORT INFORMATION
  Report Type: Spontaneous
  Country: US (occurrence: US)
  Receive Date: 20191011
  Receipt Date: 20191011
  Transmission Date: 20200122
  Serious: Yes (Hospitalization)
  Sender: FDA-Public Use
  Company Number: None

PATIENT
  Age: 78 Year
  Sex: Male
  Weight: 116.7 kg

DRUGS (1)
  1. 5-FLUOROURACIL (5-FU) (19893) [Suspect]
     Active Substance: FLUOROURACIL
     Dates: end: 20180724

REACTIONS (2)
  - Anal incontinence [None]
  - Gastrointestinal anastomotic stenosis [None]

NARRATIVE: CASE EVENT DATE: 20190726
